FAERS Safety Report 4974390-5 (Version None)
Quarter: 2006Q2

REPORT INFORMATION
  Report Type: 
  Country: None (occurrence: None)
  Receive Date: 20060417
  Receipt Date: 20060411
  Transmission Date: 20061013
  Serious: Yes (Hospitalization)
  Sender: FDA-Public Use
  Company Number: DE-BRISTOL-MYERS SQUIBB COMPANY-13344189

PATIENT
  Age: 65 Year
  Sex: Female

DRUGS (5)
  1. CYCLOPHOSPHAMIDE [Suspect]
     Indication: BREAST CANCER
  2. DOXORUBICIN HCL [Suspect]
     Indication: BREAST CANCER
  3. NEULASTA [Suspect]
     Indication: CHEMOTHERAPY
     Route: 058
  4. CIPROFLOXACIN HCL [Suspect]
  5. DOCETAXEL [Suspect]
     Indication: BREAST CANCER

REACTIONS (3)
  - DIARRHOEA [None]
  - LEUKOPENIA [None]
  - PERFORMANCE STATUS DECREASED [None]
